FAERS Safety Report 7192350-3 (Version None)
Quarter: 2010Q4

REPORT INFORMATION
  Report Type: 
  Country: None (occurrence: None)
  Receive Date: 20101223
  Receipt Date: 20101209
  Transmission Date: 20110411
  Serious: Yes (Other)
  Sender: FDA-Public Use
  Company Number: US-BAYER-2010-003987

PATIENT
  Sex: Female

DRUGS (3)
  1. YASMIN [Suspect]
     Dosage: UNK
     Route: 048
     Dates: start: 20080401
  2. YAZ [Suspect]
     Dosage: UNK
     Route: 048
     Dates: start: 20080401
  3. OCELLA [Suspect]
     Dosage: UNK
     Route: 048
     Dates: start: 20080401

REACTIONS (3)
  - MULTIPLE INJURIES [None]
  - PAIN [None]
  - PULMONARY EMBOLISM [None]
